FAERS Safety Report 4571340-0 (Version None)
Quarter: 2005Q1

REPORT INFORMATION
  Report Type: 
  Country: None (occurrence: None)
  Receive Date: 20050118
  Receipt Date: 20040730
  Transmission Date: 20050727
  Serious: Yes (Other)
  Sender: FDA-Public Use
  Company Number: HQWYE712203AUG04

PATIENT
  Sex: Female

DRUGS (1)
  1. PREMPRO [Suspect]
     Indication: HORMONE REPLACEMENT THERAPY

REACTIONS (2)
  - DEEP VEIN THROMBOSIS [None]
  - MYOCARDIAL INFARCTION [None]
